FAERS Safety Report 17258054 (Version 1)
Quarter: 2020Q1

REPORT INFORMATION
  Report Type: Spontaneous
  Country: HR (occurrence: HR)
  Receive Date: 20200110
  Receipt Date: 20200110
  Transmission Date: 20200409
  Serious: Yes (Disabling)
  Sender: FDA-Public Use
  Company Number: HR-TEVA-2020-HR-1166007

PATIENT
  Age: 15 Month
  Sex: Female
  Weight: 12 kg

DRUGS (5)
  1. MOVALIS [Suspect]
     Active Substance: MELOXICAM
     Route: 065
     Dates: start: 2017
  2. IBUPROFEN. [Suspect]
     Active Substance: IBUPROFEN
     Indication: JUVENILE IDIOPATHIC ARTHRITIS
     Route: 048
  3. REXOCEF [Suspect]
     Active Substance: CEFPODOXIME PROXETIL
     Indication: ESCHERICHIA INFECTION
     Route: 048
     Dates: start: 201611
  4. CORTICOSTEROIDS [Suspect]
     Active Substance: CORTICOSTEROID NOS
     Dates: start: 2016
  5. PRIORIX [Suspect]
     Active Substance: MEASLES-MUMPS-RUBELLA VIRUS VACCINE
     Indication: PROPHYLAXIS
     Dosage: 0.5 ML
     Route: 030
     Dates: start: 20160228, end: 20160228

REACTIONS (8)
  - Urinary tract infection [Recovered/Resolved]
  - Joint lock [Recovered/Resolved with Sequelae]
  - Joint contracture [Recovered/Resolved with Sequelae]
  - Leukopenia [Recovered/Resolved]
  - Rash macular [Recovered/Resolved]
  - Juvenile idiopathic arthritis [Not Recovered/Not Resolved]
  - Rash macular [Recovered/Resolved]
  - Immunodeficiency [Recovered/Resolved]

NARRATIVE: CASE EVENT DATE: 201611
